FAERS Safety Report 5956874-6 (Version None)
Quarter: 2008Q4

REPORT INFORMATION
  Report Type: 
  Country: None (occurrence: None)
  Receive Date: 20081118
  Receipt Date: 20081111
  Transmission Date: 20090506
  Serious: Yes (Other)
  Sender: FDA-Public Use
  Company Number: US-JNJFOC-20081103009

PATIENT
  Age: 2 Year
  Sex: Male
  Weight: 11.34 kg

DRUGS (2)
  1. TYLENOL (CAPLET) [Suspect]
     Indication: VOMITING
     Route: 048
  2. TYLENOL (CAPLET) [Suspect]
     Indication: PYREXIA
     Route: 048

REACTIONS (1)
  - HYPERSENSITIVITY [None]
